FAERS Safety Report 5427476-5 (Version None)
Quarter: 2007Q3

REPORT INFORMATION
  Report Type: 
  Country: None (occurrence: None)
  Receive Date: 20070824
  Receipt Date: 20070824
  Transmission Date: 20080115
  Serious: Yes (Life-Threatening)
  Sender: FDA-Public Use
  Company Number: None

PATIENT
  Age: 81 Year
  Sex: Male
  Weight: 81.6475 kg

DRUGS (2)
  1. LIPITOR [Suspect]
     Indication: ANGINA PECTORIS
  2. LIPITOR [Suspect]
     Indication: BLOOD CHOLESTEROL INCREASED

REACTIONS (4)
  - AMYOTROPHIC LATERAL SCLEROSIS [None]
  - BREATH ODOUR [None]
  - LIVER DISORDER [None]
  - MUSCULAR WEAKNESS [None]
